FAERS Safety Report 6852641-X (Version None)
Quarter: 2010Q3

REPORT INFORMATION
  Report Type: 
  Country: None (occurrence: None)
  Receive Date: 20100717
  Receipt Date: 20080123
  Transmission Date: 20110219
  Serious: No
  Sender: FDA-Public Use
  Company Number: US-PFIZER INC-2007096320

PATIENT
  Sex: Female
  Weight: 73.181 kg

DRUGS (6)
  1. CHANTIX [Suspect]
     Indication: SMOKING CESSATION THERAPY
     Route: 048
     Dates: start: 20070929
  2. ZOLOFT [Concomitant]
  3. IBUPROFEN [Concomitant]
  4. FOSAMAX [Concomitant]
  5. MULTI-VITAMINS [Concomitant]
  6. VITAMIN C [Concomitant]

REACTIONS (5)
  - HEADACHE [None]
  - HERPES SIMPLEX [None]
  - LIP SWELLING [None]
  - LOW DENSITY LIPOPROTEIN INCREASED [None]
  - OEDEMA MOUTH [None]
